FAERS Safety Report 9158606 (Version 2)
Quarter: 2013Q1

REPORT INFORMATION
  Report Type: Report from Study
  Country: FR (occurrence: FR)
  Receive Date: 20130312
  Receipt Date: 20130314
  Transmission Date: 20140127
  Serious: Yes (Hospitalization)
  Sender: FDA-Public Use
  Company Number: FR-ROCHE-1128164

PATIENT
  Age: 55 Year
  Sex: Female
  Weight: 51 kg

DRUGS (10)
  1. TOCILIZUMAB [Suspect]
     Indication: RHEUMATOID ARTHRITIS
     Route: 042
     Dates: start: 20110611
  2. TOCILIZUMAB [Suspect]
     Route: 065
     Dates: start: 20110923
  3. CORTANCYL [Concomitant]
     Indication: RHEUMATOID ARTHRITIS
     Route: 048
     Dates: start: 201106
  4. CORTANCYL [Concomitant]
     Route: 065
     Dates: start: 20110923
  5. CORTANCYL [Concomitant]
     Route: 065
     Dates: start: 20120427
  6. INEXIUM [Concomitant]
     Route: 065
  7. INEXIUM [Concomitant]
     Route: 065
     Dates: start: 20120427
  8. STILNOX [Concomitant]
     Route: 065
  9. SEROPLEX [Concomitant]
     Dosage: 1 DF
     Route: 065
  10. SPECIAFOLDINE [Concomitant]
     Dosage: 2 DF
     Route: 065

REACTIONS (13)
  - Infusion related reaction [Recovered/Resolved]
  - Sinusitis [Recovered/Resolved]
  - Pruritus [Recovered/Resolved]
  - Headache [Not Recovered/Not Resolved]
  - Oropharyngeal pain [Recovered/Resolved]
  - Decreased appetite [Recovered/Resolved]
  - Gastrointestinal sounds abnormal [Recovered/Resolved]
  - Nausea [Recovered/Resolved]
  - Incision site infection [Recovered/Resolved]
  - Lymphadenopathy [Not Recovered/Not Resolved]
  - Dysuria [Recovered/Resolved]
  - Abdominal pain [Recovered/Resolved]
  - Nausea [Recovered/Resolved]
